FAERS Safety Report 21085269 (Version 1)
Quarter: 2022Q3

REPORT INFORMATION
  Report Type: Spontaneous
  Country: IT (occurrence: IT)
  Receive Date: 20220714
  Receipt Date: 20220714
  Transmission Date: 20221027
  Serious: Yes (Hospitalization)
  Sender: FDA-Public Use
  Company Number: IT-PRINSTON PHARMACEUTICAL INC.-2022PRN00247

PATIENT
  Age: 7 Day
  Sex: Female
  Weight: 3.08 kg

DRUGS (1)
  1. VENLAFAXINE [Suspect]
     Active Substance: VENLAFAXINE HYDROCHLORIDE
     Dosage: MATERNAL DOSE OF 150 MG/DAY
     Route: 063

REACTIONS (5)
  - Toxicity to various agents [Recovered/Resolved]
  - Exposure via breast milk [Recovered/Resolved]
  - Hypotonia neonatal [Recovered/Resolved]
  - Weight gain poor [Recovered/Resolved]
  - Sedation [Recovered/Resolved]
